FAERS Safety Report 4485049-5 (Version None)
Quarter: 2004Q3

REPORT INFORMATION
  Report Type: 
  Country: None (occurrence: None)
  Receive Date: 20040921
  Receipt Date: 20031117
  Transmission Date: 20050211
  Serious: Yes (Hospitalization)
  Sender: FDA-Public Use
  Company Number: 2002-08-0474(1)

PATIENT
  Age: 66 Year
  Sex: Female
  Weight: 60 kg

DRUGS (22)
  1. THALOMID [Suspect]
     Indication: MULTIPLE MYELOMA
     Dosage: 100 MG, QHS, ORAL; 100 MG, QD, ORAL; 50 MG TO 100 MG, QHS, ORAL
     Route: 048
     Dates: start: 20030331, end: 20030101
  2. THALOMID [Suspect]
     Indication: MULTIPLE MYELOMA
     Dosage: 100 MG, QHS, ORAL; 100 MG, QD, ORAL; 50 MG TO 100 MG, QHS, ORAL
     Route: 048
     Dates: start: 20020710, end: 20030228
  3. THALOMID [Suspect]
     Indication: MULTIPLE MYELOMA
     Dosage: 100 MG, QHS, ORAL; 100 MG, QD, ORAL; 50 MG TO 100 MG, QHS, ORAL
     Route: 048
     Dates: start: 20030428
  4. PREDNISONE [Suspect]
     Indication: MULTIPLE MYELOMA
     Dosage: 25 MG, QOD, ORAL
     Route: 048
     Dates: start: 20030428
  5. DOXORUBICIN HYDROCHLORIDE [Suspect]
     Indication: MULTIPLE MYELOMA
     Dosage: 68 MG, INTRAVENOUS
     Route: 042
     Dates: start: 20020710, end: 20030228
  6. VINCRISTINE [Suspect]
     Indication: MULTIPLE MYELOMA
     Dosage: 1 MG, N/P, INTRAVENOUS
     Route: 042
     Dates: start: 20020710, end: 20030228
  7. DECADRON [Suspect]
     Indication: MULTIPLE MYELOMA
     Dosage: 40 MG, QD
     Dates: start: 20020710, end: 20030228
  8. ZOVIRAX (ACICLOVIR) (TABLETS) [Concomitant]
  9. ECOTRIN (ACETYLSALICYLIC ACID) (TABLETS) [Concomitant]
  10. COLACE (DOCUSATE SODIUM) [Concomitant]
  11. PEPCID (FAMOTIDINE) (TABLETS) [Concomitant]
  12. SYNTHROID (LEVOTHYROXINE SODIUM) (TABLETS) [Concomitant]
  13. MILK OF MAGNESIA (MAGNESIUM HYDROXIDE) [Concomitant]
  14. MEGACE (MEGETROL ACETATE) [Concomitant]
  15. REGLAN [Concomitant]
  16. MS CONTIN [Concomitant]
  17. STARLIX (NATEGLINIDE) (TABLETS) [Concomitant]
  18. PREDNISONE [Concomitant]
  19. XANAX [Concomitant]
  20. MORPHINE SULFATE [Concomitant]
  21. FLORINEF (FLUDROCORTISONE ACETATE) (TABLETS) [Concomitant]
  22. INSULIN, SLIDING SCALE (INSULIN) (INJECTION) [Concomitant]

REACTIONS (18)
  - ABDOMINAL PAIN [None]
  - ADENOCARCINOMA PANCREAS [None]
  - ASTHENIA [None]
  - ATAXIA [None]
  - BACK PAIN [None]
  - CAROTID ARTERY STENOSIS [None]
  - COLITIS [None]
  - DEHYDRATION [None]
  - FAILURE TO THRIVE [None]
  - GASTROENTERITIS [None]
  - HYPERGLYCAEMIA [None]
  - HYPERTENSION [None]
  - INJURY [None]
  - MARKEDLY REDUCED DIETARY INTAKE [None]
  - MEAN CELL VOLUME INCREASED [None]
  - ORTHOSTATIC HYPOTENSION [None]
  - SYNCOPE [None]
  - WEIGHT DECREASED [None]
